FAERS Safety Report 5466717-5 (Version None)
Quarter: 2007Q3

REPORT INFORMATION
  Report Type: 
  Country: None (occurrence: None)
  Receive Date: 20070920
  Receipt Date: 20070911
  Transmission Date: 20080115
  Serious: Yes (Other)
  Sender: FDA-Public Use
  Company Number: 2007S1000227

PATIENT
  Age: 69 Year
  Sex: Female

DRUGS (3)
  1. ACITRETIN [Suspect]
     Indication: PITYRIASIS RUBRA PILARIS
     Dosage: ; PO
     Route: 048
  2. CORTICOSTEROIDS FOR SYSTEMIC USE [Concomitant]
  3. OCULAR LUBRICANT / 01768801/ [Concomitant]

REACTIONS (6)
  - BOWMAN'S MEMBRANE DISORDER [None]
  - CORNEAL PERFORATION [None]
  - ECTROPION [None]
  - EYE INJURY [None]
  - KERATOPLASTY [None]
  - ULCERATIVE KERATITIS [None]
